FAERS Safety Report 15463789 (Version 1)
Quarter: 2018Q4

REPORT INFORMATION
  Report Type: Spontaneous
  Country: US (occurrence: US)
  Receive Date: 20181004
  Receipt Date: 20181004
  Transmission Date: 20190204
  Serious: Yes (Death)
  Sender: FDA-Public Use
  Company Number: US-ROCHE-2194456

PATIENT
  Sex: Male

DRUGS (2)
  1. GUAIFENESIN. [Concomitant]
     Active Substance: GUAIFENESIN
  2. ESBRIET [Suspect]
     Active Substance: PIRFENIDONE
     Indication: PULMONARY FIBROSIS
     Route: 048
     Dates: start: 20160604

REACTIONS (1)
  - Death [Fatal]
